FAERS Safety Report 13890618 (Version 1)
Quarter: 2017Q3

REPORT INFORMATION
  Report Type: Spontaneous
  Country: CH (occurrence: CH)
  Receive Date: 20170822
  Receipt Date: 20170822
  Transmission Date: 20171127
  Serious: Yes (Hospitalization, Other)
  Sender: FDA-Public Use
  Company Number: CH-TELIGENT, INC-IGIL20170370

PATIENT
  Age: 82 Year
  Sex: Male

DRUGS (11)
  1. LISINOPRIL. [Concomitant]
     Active Substance: LISINOPRIL
     Indication: PRODUCT USED FOR UNKNOWN INDICATION
     Dosage: 5 MG
     Route: 065
  2. BELOC ZOK [Concomitant]
     Active Substance: METOPROLOL SUCCINATE
     Indication: PRODUCT USED FOR UNKNOWN INDICATION
     Dosage: 25 MG
     Route: 065
  3. ZINACEF [Suspect]
     Active Substance: CEFUROXIME SODIUM
     Indication: UROSEPSIS
     Dosage: 750 MG
     Route: 041
     Dates: start: 20170423, end: 20170424
  4. ZINAT [Suspect]
     Active Substance: CEFUROXIME AXETIL
     Indication: UROSEPSIS
     Dosage: 500 MG
     Route: 048
     Dates: start: 20170425, end: 20170505
  5. SINTROM [Concomitant]
     Active Substance: ACENOCOUMAROL
     Indication: PRODUCT USED FOR UNKNOWN INDICATION
     Dosage: UNKNOWN
     Route: 065
  6. NEXIUM [Suspect]
     Active Substance: ESOMEPRAZOLE MAGNESIUM
     Indication: PRODUCT USED FOR UNKNOWN INDICATION
     Dosage: 40 MG
     Route: 048
     Dates: start: 20170420
  7. AUGMENTIN [Suspect]
     Active Substance: AMOXICILLIN\CLAVULANATE POTASSIUM
     Indication: UROSEPSIS
     Dosage: 0.6 G
     Route: 065
     Dates: start: 20170420, end: 20170421
  8. ROCEPHINE [Suspect]
     Active Substance: CEFTRIAXONE SODIUM
     Indication: UROSEPSIS
     Dosage: 2 G
     Route: 041
     Dates: start: 20170421, end: 20170422
  9. REFOBACIN [Suspect]
     Active Substance: GENTAMICIN SULFATE
     Indication: UROSEPSIS
     Dosage: 70 MG
     Route: 041
     Dates: start: 20170420, end: 20170420
  10. ALDACTONE [Concomitant]
     Active Substance: SPIRONOLACTONE
     Indication: PRODUCT USED FOR UNKNOWN INDICATION
     Dosage: 25 MG
     Route: 065
  11. TOREM [Concomitant]
     Active Substance: TORSEMIDE
     Indication: PRODUCT USED FOR UNKNOWN INDICATION
     Dosage: 10 MG
     Route: 065

REACTIONS (6)
  - Skin ulcer [Recovered/Resolved]
  - Papule [Recovered/Resolved]
  - Eczema [Recovered/Resolved]
  - Skin toxicity [Recovered/Resolved]
  - Epidermal necrosis [Recovered/Resolved]
  - Skin plaque [Recovered/Resolved]

NARRATIVE: CASE EVENT DATE: 20170424
